FAERS Safety Report 25048830 (Version 1)
Quarter: 2025Q1

REPORT INFORMATION
  Report Type: Spontaneous
  Country: CZ (occurrence: CZ)
  Receive Date: 20250307
  Receipt Date: 20250307
  Transmission Date: 20250408
  Serious: Yes (Hospitalization, Other)
  Sender: NOVITIUM PHARMA
  Company Number: CZ-NOVITIUMPHARMA-2025CZNVP00530

PATIENT
  Age: 66 Year
  Sex: Male

DRUGS (12)
  1. PREDNISONE [Suspect]
     Active Substance: PREDNISONE
     Indication: B-cell lymphoma stage IV
  2. RITUXIMAB [Concomitant]
     Active Substance: RITUXIMAB
  3. RITUXIMAB [Concomitant]
     Active Substance: RITUXIMAB
  4. CYCLOPHOSPHAMIDE [Concomitant]
     Active Substance: CYCLOPHOSPHAMIDE
  5. DOXORUBICIN [Concomitant]
     Active Substance: DOXORUBICIN
  6. VINCRISTINE [Concomitant]
     Active Substance: VINCRISTINE
  7. ETOPOSIDE [Concomitant]
     Active Substance: ETOPOSIDE
  8. PREDNISOLONE [Concomitant]
     Active Substance: PREDNISOLONE
  9. DEXAMETHASONE [Concomitant]
     Active Substance: DEXAMETHASONE
     Indication: High-grade B-cell lymphoma
  10. CYTARABINE [Concomitant]
     Active Substance: CYTARABINE
     Indication: High-grade B-cell lymphoma
  11. CYTARABINE [Concomitant]
     Active Substance: CYTARABINE
  12. OXALIPLATIN [Concomitant]
     Active Substance: OXALIPLATIN
     Indication: High-grade B-cell lymphoma

REACTIONS (2)
  - Myelosuppression [Unknown]
  - Neurotoxicity [Unknown]
